FAERS Safety Report 4295931-X (Version None)
Quarter: 2004Q1

REPORT INFORMATION
  Report Type: 
  Country: None (occurrence: None)
  Receive Date: 20040216
  Receipt Date: 20030819
  Transmission Date: 20041129
  Serious: No
  Sender: FDA-Public Use
  Company Number: US-GLAXOSMITHKLINE-A0422643A

PATIENT
  Age: 56 Year
  Sex: Female

DRUGS (7)
  1. LAMOTRIGINE [Suspect]
     Indication: BIPOLAR DISORDER
     Dosage: 50MG PER DAY
     Route: 048
     Dates: end: 20030401
  2. BUSPAR [Concomitant]
  3. ZOLOFT [Concomitant]
  4. SEROQUEL [Concomitant]
  5. ALBUTEROL [Concomitant]
  6. TRAMADOL HCL [Concomitant]
  7. NAPROXEN [Concomitant]

REACTIONS (2)
  - PRURITUS [None]
  - RASH [None]
